FAERS Safety Report 19221921 (Version 1)
Quarter: 2021Q2

REPORT INFORMATION
  Report Type: Spontaneous
  Country: US (occurrence: US)
  Receive Date: 20210506
  Receipt Date: 20210506
  Transmission Date: 20210717
  Serious: No
  Sender: FDA-Public Use
  Company Number: US-EMCURE PHARMACEUTICALS LTD-2021-EPL-001496

PATIENT

DRUGS (9)
  1. CADERGOLINE [Concomitant]
     Indication: NEOPLASM
     Dosage: 1 MILLIGRAM, 1 DOSE PER 1W
  2. WELCHOL [Concomitant]
     Active Substance: COLESEVELAM HYDROCHLORIDE
  3. TIMOLOL. [Concomitant]
     Active Substance: TIMOLOL
  4. DESVENLAFAXINE SUCCINATE. [Concomitant]
     Active Substance: DESVENLAFAXINE SUCCINATE
     Indication: DEPRESSION
  5. ATORVASTATIN [Concomitant]
     Active Substance: ATORVASTATIN
  6. HYDROXYZINE PAMOATE. [Suspect]
     Active Substance: HYDROXYZINE PAMOATE
     Indication: SLEEP DISORDER
     Dosage: 50 MILLIGRAM, 2 PILLS ONCE A DAY AT NIGHT
     Route: 065
     Dates: start: 20210407, end: 20210430
  7. ABILIFY [Concomitant]
     Active Substance: ARIPIPRAZOLE
     Indication: BIPOLAR DISORDER
     Dosage: 40 MILLIGRAM, QD
  8. TOPAMAX [Concomitant]
     Active Substance: TOPIRAMATE
  9. GABAPENTIN. [Concomitant]
     Active Substance: GABAPENTIN
     Indication: NEUROPATHY PERIPHERAL

REACTIONS (2)
  - Drug ineffective [Unknown]
  - Fatigue [Unknown]
